FAERS Safety Report 5059618-8 (Version None)
Quarter: 2006Q3

REPORT INFORMATION
  Report Type: 
  Country: None (occurrence: None)
  Receive Date: 20060724
  Receipt Date: 20060608
  Transmission Date: 20061208
  Serious: Yes (Hospitalization)
  Sender: FDA-Public Use
  Company Number: 2006AP02716

PATIENT
  Age: 60 Year
  Sex: Male

DRUGS (4)
  1. OMEPRAL [Suspect]
     Indication: GASTRIC ULCER
     Route: 048
     Dates: start: 20060529, end: 20060602
  2. PREDONINE [Concomitant]
     Route: 048
     Dates: start: 20060529, end: 20060602
  3. PREDONINE [Concomitant]
     Route: 048
     Dates: start: 20060602, end: 20060602
  4. PREDONINE [Concomitant]
     Route: 048
     Dates: start: 20060602

REACTIONS (4)
  - AGRANULOCYTOSIS [None]
  - C-REACTIVE PROTEIN INCREASED [None]
  - JAUNDICE [None]
  - PLATELET COUNT DECREASED [None]
